FAERS Safety Report 5591871-4 (Version None)
Quarter: 2008Q1

REPORT INFORMATION
  Report Type: 
  Country: None (occurrence: None)
  Receive Date: 20080115
  Receipt Date: 20080109
  Transmission Date: 20080703
  Serious: Yes (Death)
  Sender: FDA-Public Use
  Company Number: CA-BAXTER-2008BH000307

PATIENT
  Age: 65 Year
  Sex: Male

DRUGS (3)
  1. DOPAMINE HCL IN 5% DEXTROSE [Suspect]
     Indication: RESPIRATORY FAILURE
     Dosage: DOSE UNIT:UNKNOWN
     Route: 042
  2. EPINEPHRINE [Concomitant]
     Indication: RESPIRATORY FAILURE
     Dosage: DOSE UNIT:UNKNOWN
     Route: 042
     Dates: start: 20071201
  3. LEVOPHED [Concomitant]
     Indication: RESPIRATORY FAILURE
     Dosage: DOSE UNIT:UNKNOWN
     Route: 042
     Dates: start: 20071201

REACTIONS (2)
  - DEATH [None]
  - DEVICE FAILURE [None]
